FAERS Safety Report 21609903 (Version 2)
Quarter: 2022Q4

REPORT INFORMATION
  Report Type: Report from Study
  Country: NL (occurrence: NL)
  Receive Date: 20221117
  Receipt Date: 20221123
  Transmission Date: 20230113
  Serious: Yes (Hospitalization, Other)
  Sender: FDA-Public Use
  Company Number: NL-BRISTOL-MYERS SQUIBB COMPANY-2022-138742

PATIENT
  Age: 75 Year
  Sex: Male

DRUGS (10)
  1. NIVOLUMAB [Suspect]
     Active Substance: NIVOLUMAB
     Indication: Metastases to pancreas
     Route: 042
     Dates: start: 20220926, end: 20221024
  2. NIVOLUMAB [Suspect]
     Active Substance: NIVOLUMAB
     Route: 042
  3. apixavan [Concomitant]
     Indication: Product used for unknown indication
  4. ATORVASTATIN [Concomitant]
     Active Substance: ATORVASTATIN
     Indication: Product used for unknown indication
  5. EZETIMIBE [Concomitant]
     Active Substance: EZETIMIBE
     Indication: Product used for unknown indication
  6. FLECAINIDE [Concomitant]
     Active Substance: FLECAINIDE
     Indication: Product used for unknown indication
  7. METFORMIN [Concomitant]
     Active Substance: METFORMIN HYDROCHLORIDE
     Indication: Product used for unknown indication
  8. METOPROLOL [Concomitant]
     Active Substance: METOPROLOL
     Indication: Product used for unknown indication
  9. PERINDOPRIL [Concomitant]
     Active Substance: PERINDOPRIL
  10. ZOPICLONE [Concomitant]
     Active Substance: ZOPICLONE
     Indication: Product used for unknown indication

REACTIONS (11)
  - Feeling drunk [Unknown]
  - Balance disorder [Unknown]
  - Immune-mediated myositis [Unknown]
  - Immune-mediated myasthenia gravis [Unknown]
  - Pneumonia [Unknown]
  - Pneumonitis [Unknown]
  - Drug-induced liver injury [Recovering/Resolving]
  - Polyneuropathy [Unknown]
  - Metastases to liver [Unknown]
  - Metastases to lymph nodes [Unknown]
  - Autoimmune myocarditis [Unknown]

NARRATIVE: CASE EVENT DATE: 20221110
